FAERS Safety Report 7996942-0 (Version None)
Quarter: 2011Q4

REPORT INFORMATION
  Report Type: 
  Country: None (occurrence: None)
  Receive Date: 20111221
  Receipt Date: 20111217
  Transmission Date: 20120403
  Serious: Yes (Other)
  Sender: FDA-Public Use
  Company Number: US-PFIZER INC-2011307034

PATIENT
  Age: 19 Year
  Sex: Male
  Weight: 72 kg

DRUGS (1)
  1. ROBITUSSIN LINGERING COLD LONG-ACTING COUGH [Suspect]
     Indication: DRUG ABUSER
     Dosage: UNK
     Dates: start: 20110101, end: 20110101

REACTIONS (3)
  - OVERDOSE [None]
  - HALLUCINATION [None]
  - DRUG ABUSE [None]
